FAERS Safety Report 4374276-3 (Version None)
Quarter: 2004Q2

REPORT INFORMATION
  Report Type: 
  Country: None (occurrence: None)
  Receive Date: 20040609
  Receipt Date: 20031110
  Transmission Date: 20050107
  Serious: Yes (Death)
  Sender: FDA-Public Use
  Company Number: JP-BRISTOL-MYERS SQUIBB COMPANY-12433173

PATIENT
  Age: 73 Year
  Sex: Male

DRUGS (15)
  1. TAXOL [Suspect]
     Indication: LUNG NEOPLASM MALIGNANT
     Route: 042
     Dates: start: 20020108, end: 20020108
  2. PARAPLATIN [Suspect]
     Indication: LUNG NEOPLASM MALIGNANT
     Dosage: AUC=6
     Route: 042
     Dates: start: 20020108, end: 20020108
  3. DOMPERIDONE [Concomitant]
     Route: 048
     Dates: start: 20020108, end: 20020114
  4. AZASETRON HCL [Concomitant]
     Route: 042
     Dates: start: 20020108, end: 20020108
  5. DEXAMETHASONE SODIUM PHOSPHATE [Concomitant]
     Route: 042
     Dates: start: 20020108, end: 20020108
  6. RANITIDINE HCL [Concomitant]
     Route: 042
     Dates: start: 20020108, end: 20020108
  7. L-CARBOCISTEINE [Concomitant]
     Route: 048
     Dates: start: 20011228, end: 20020211
  8. DIMEMORFAN PHOSPHATE [Concomitant]
     Route: 048
     Dates: start: 20011128, end: 20020211
  9. THEOPHYLLINE [Concomitant]
     Route: 048
     Dates: start: 20011128, end: 20020211
  10. ECABET SODIUM [Concomitant]
     Route: 048
     Dates: start: 20011128, end: 20020211
  11. LANSOPRAZOLE [Concomitant]
     Route: 048
     Dates: start: 20011213, end: 20020211
  12. LOXOPROFEN SODIUM [Concomitant]
     Route: 048
     Dates: start: 20020108, end: 20020114
  13. CHINESE HERBS [Concomitant]
     Route: 048
     Dates: start: 20020108, end: 20020114
  14. ZAFIRLUKAST [Concomitant]
     Route: 048
     Dates: start: 20011128, end: 20020211
  15. DIPHENHYDRAMINE HCL [Concomitant]
     Route: 048
     Dates: start: 20020108, end: 20020108

REACTIONS (1)
  - INTERSTITIAL LUNG DISEASE [None]
